FAERS Safety Report 20994043 (Version 7)
Quarter: 2025Q3

REPORT INFORMATION
  Report Type: Report from Study
  Country: CA (occurrence: CA)
  Receive Date: 20220622
  Receipt Date: 20250814
  Transmission Date: 20251021
  Serious: Yes (Hospitalization, Other)
  Sender: BIOCON
  Company Number: CA-MYLANLABS-2022M1045918

PATIENT

DRUGS (3)
  1. HULIO [Suspect]
     Active Substance: ADALIMUMAB-FKJP
     Indication: Psoriasis
     Route: 058
     Dates: start: 20211028
  2. HULIO [Suspect]
     Active Substance: ADALIMUMAB-FKJP
     Dosage: 40 MILLIGRAM, Q2W (EVERY 2 WEEKS)
     Route: 058
     Dates: start: 20211028
  3. HULIO [Suspect]
     Active Substance: ADALIMUMAB-FKJP
     Dosage: UNK, Q2W
     Route: 058

REACTIONS (7)
  - Pulmonary embolism [Unknown]
  - Dementia [Unknown]
  - Tachyphylaxis [Unknown]
  - Cognitive disorder [Unknown]
  - Psoriasis [Unknown]
  - Therapy interrupted [Unknown]
  - Product dose omission issue [Unknown]
